FAERS Safety Report 8365556-5 (Version None)
Quarter: 2012Q2

REPORT INFORMATION
  Report Type: 
  Country: None (occurrence: None)
  Receive Date: 20120516
  Receipt Date: 20120508
  Transmission Date: 20120825
  Serious: Yes (Hospitalization)
  Sender: FDA-Public Use
  Company Number: GB-ABBOTT-12P-167-0933210-00

PATIENT
  Age: 61 Year
  Sex: Male

DRUGS (3)
  1. NORVIR [Suspect]
     Indication: HIV INFECTION
     Dosage: PHARMACEUTICAL FORM 245
     Route: 048
  2. MARAVIROC [Interacting]
     Indication: HIV TROPISM TEST
     Dosage: PHARMACEUTICAL FORM 82
     Route: 048
  3. REYATAZ [Interacting]
     Indication: HIV INFECTION
     Dosage: PHARMACEUTICAL FORM 5
     Route: 048

REACTIONS (2)
  - DRUG INTERACTION [None]
  - HOSPITALISATION [None]
